FAERS Safety Report 25214551 (Version 1)
Quarter: 2025Q2

REPORT INFORMATION
  Report Type: Spontaneous
  Country: DE (occurrence: DE)
  Receive Date: 20250418
  Receipt Date: 20250418
  Transmission Date: 20250716
  Serious: Yes (Life-Threatening, Hospitalization, Congenital Anomaly, Other)
  Sender: TEVA
  Company Number: DE-EMB-M202308788-2

PATIENT
  Sex: Male
  Weight: 2.37 kg

DRUGS (9)
  1. VINBLASTINE [Suspect]
     Active Substance: VINBLASTINE
     Indication: Hodgkin^s disease
     Route: 064
     Dates: start: 202311, end: 202402
  2. ONDANSETRON [Concomitant]
     Active Substance: ONDANSETRON
     Indication: Prophylaxis of nausea and vomiting
     Route: 064
     Dates: start: 202311, end: 202402
  3. DIMENHYDRINATE [Concomitant]
     Active Substance: DIMENHYDRINATE
     Indication: Prophylaxis of nausea and vomiting
     Route: 064
     Dates: start: 202311, end: 202402
  4. BLEOMYCIN [Suspect]
     Active Substance: BLEOMYCIN SULFATE
     Indication: Hodgkin^s disease
     Route: 064
     Dates: start: 202311, end: 202401
  5. DOXORUBICIN [Suspect]
     Active Substance: DOXORUBICIN
     Indication: Hodgkin^s disease
     Route: 064
     Dates: start: 202311, end: 202402
  6. MCP [Concomitant]
     Active Substance: METOCLOPRAMIDE HYDROCHLORIDE
     Indication: Antiemetic supportive care
     Route: 064
  7. CLEMASTINE FUMARATE [Concomitant]
     Active Substance: CLEMASTINE FUMARATE
     Indication: Anaphylaxis prophylaxis
     Route: 064
     Dates: start: 202311, end: 202401
  8. DEXAMETHASONE [Concomitant]
     Active Substance: DEXAMETHASONE
     Indication: Hodgkin^s disease
     Route: 064
     Dates: start: 202311, end: 202402
  9. DACARBAZINE [Suspect]
     Active Substance: DACARBAZINE
     Indication: Hodgkin^s disease
     Route: 064
     Dates: start: 202311, end: 202402

REACTIONS (5)
  - Patent ductus arteriosus [Recovered/Resolved]
  - Blood loss anaemia neonatal [Recovered/Resolved]
  - Foetal exposure during pregnancy [Unknown]
  - Premature baby [Recovered/Resolved]
  - Thrombocytopenia neonatal [Recovered/Resolved]
